FAERS Safety Report 9952999 (Version 1)
Quarter: 2014Q1

REPORT INFORMATION
  Report Type: Report from Study
  Country: US (occurrence: US)
  Receive Date: 20140304
  Receipt Date: 20140304
  Transmission Date: 20141002
  Serious: No
  Sender: FDA-Public Use
  Company Number: US-ABBVIE-13P-163-1073109-00

PATIENT
  Age: 43 Year
  Sex: Male
  Weight: 80.36 kg

DRUGS (3)
  1. HUMIRA [Suspect]
     Indication: PSORIATIC ARTHROPATHY
     Route: 058
     Dates: start: 200801, end: 200809
  2. HUMIRA [Suspect]
     Route: 058
     Dates: start: 201001, end: 201006
  3. HUMIRA [Suspect]
     Route: 058
     Dates: start: 201301

REACTIONS (3)
  - Pain in extremity [Not Recovered/Not Resolved]
  - Joint stiffness [Not Recovered/Not Resolved]
  - Local swelling [Not Recovered/Not Resolved]
